FAERS Safety Report 8928593 (Version 2)
Quarter: 2013Q1

REPORT INFORMATION
  Report Type: Spontaneous
  Country: US (occurrence: US)
  Receive Date: 20121128
  Receipt Date: 20130319
  Transmission Date: 20140127
  Serious: Yes (Death, Congenital Anomaly, Other)
  Sender: FDA-Public Use
  Company Number: US-ELI_LILLY_AND_COMPANY-US201211005368

PATIENT
  Sex: 0

DRUGS (1)
  1. PROZAC [Suspect]
     Dosage: 1 DF, UNKNOWN
     Route: 064

REACTIONS (8)
  - Death [Fatal]
  - Coarctation of the aorta [Unknown]
  - Ventricular septal defect [Unknown]
  - Atrial septal defect [Unknown]
  - Renal fusion anomaly [Unknown]
  - Cleft palate [Unknown]
  - Premature baby [Unknown]
  - Foetal exposure during pregnancy [Recovered/Resolved]
